FAERS Safety Report 9011270 (Version 2)
Quarter: 2013Q1

REPORT INFORMATION
  Report Type: Spontaneous
  Country: US (occurrence: US)
  Receive Date: 20130109
  Receipt Date: 20130114
  Transmission Date: 20140127
  Serious: No
  Sender: FDA-Public Use
  Company Number: US-009507513-1301USA002883

PATIENT
  Sex: Male

DRUGS (7)
  1. VICTRELIS [Suspect]
     Indication: HEPATITIS C
     Dosage: 800 MG, TID
     Route: 048
     Dates: start: 20121113
  2. PEGINTRON [Suspect]
     Dosage: UNK
  3. RIBASPHERE [Concomitant]
  4. METHADONE HYDROCHLORIDE [Concomitant]
  5. IBUPROFEN [Concomitant]
  6. ONDANSETRON [Concomitant]
  7. DOXYCYCLINE [Concomitant]

REACTIONS (2)
  - Influenza like illness [Unknown]
  - Nausea [Unknown]
